FAERS Safety Report 5946381-9 (Version None)
Quarter: 2008Q4

REPORT INFORMATION
  Report Type: 
  Country: None (occurrence: None)
  Receive Date: 20081106
  Receipt Date: 20081106
  Transmission Date: 20090506
  Serious: Yes (Hospitalization)
  Sender: FDA-Public Use
  Company Number: None

PATIENT
  Age: 86 Year
  Sex: Female

DRUGS (3)
  1. CELECOXIB [Suspect]
     Indication: ANTIINFLAMMATORY THERAPY
     Dosage: PO
     Route: 048
  2. WARFARIN SODIUM [Suspect]
     Indication: ATRIAL FIBRILLATION
     Dosage: PO
     Route: 048
  3. ASPIRIN [Suspect]
     Indication: ATRIAL FIBRILLATION
     Dosage: PO

REACTIONS (8)
  - ASTHENIA [None]
  - GASTRIC ULCER [None]
  - HAEMOGLOBIN DECREASED [None]
  - HYPOTENSION [None]
  - INTERNATIONAL NORMALISED RATIO INCREASED [None]
  - MELAENA [None]
  - NAUSEA [None]
  - TACHYCARDIA [None]
